FAERS Safety Report 10270122 (Version 2)
Quarter: 2014Q3

REPORT INFORMATION
  Report Type: Spontaneous
  Country: US (occurrence: US)
  Receive Date: 20140701
  Receipt Date: 20140701
  Transmission Date: 20150326
  Serious: No
  Sender: FDA-Public Use
  Company Number: US-BAYER-2014-092677

PATIENT
  Age: 39 Year
  Sex: Female
  Weight: 48 kg

DRUGS (1)
  1. ALEVE [Suspect]
     Active Substance: NAPROXEN SODIUM
     Indication: PROCEDURAL PAIN
     Dosage: 1 DF, PRN
     Route: 048
     Dates: start: 201306

REACTIONS (2)
  - Drug effect delayed [None]
  - Incorrect drug administration duration [None]

NARRATIVE: CASE EVENT DATE: 201306
